FAERS Safety Report 7538594-X (Version None)
Quarter: 2011Q2

REPORT INFORMATION
  Report Type: 
  Country: None (occurrence: None)
  Receive Date: 20110610
  Receipt Date: 20110602
  Transmission Date: 20111010
  Serious: No
  Sender: FDA-Public Use
  Company Number: US-BIOGENIDEC-2011BI020422

PATIENT
  Age: 60 Year
  Sex: Female

DRUGS (5)
  1. TYSABRI [Suspect]
     Route: 042
     Dates: start: 20100311, end: 20100506
  2. AVONEX [Concomitant]
     Route: 030
     Dates: start: 20000401
  3. TYSABRI [Suspect]
     Indication: MULTIPLE SCLEROSIS
     Route: 042
     Dates: start: 20110422
  4. AVONEX [Concomitant]
     Indication: MULTIPLE SCLEROSIS
     Route: 030
     Dates: start: 20100803
  5. AVONEX [Concomitant]
     Route: 030
     Dates: start: 20070928

REACTIONS (1)
  - FATIGUE [None]
